FAERS Safety Report 6678690-2 (Version None)
Quarter: 2010Q2

REPORT INFORMATION
  Report Type: 
  Country: None (occurrence: None)
  Receive Date: 20100413
  Receipt Date: 20100412
  Transmission Date: 20101027
  Serious: Yes (Death, Other)
  Sender: FDA-Public Use
  Company Number: GB-ASTRAZENECA-2010SE15886

PATIENT
  Age: 38 Year
  Sex: Male

DRUGS (1)
  1. MEROPENEM [Suspect]
     Indication: URINARY TRACT INFECTION
     Route: 042

REACTIONS (2)
  - CARDIOPULMONARY FAILURE [None]
  - VITAL FUNCTIONS ABNORMAL [None]
